FAERS Safety Report 5526149-8 (Version None)
Quarter: 2007Q4

REPORT INFORMATION
  Report Type: 
  Country: None (occurrence: None)
  Receive Date: 20071126
  Receipt Date: 20071110
  Transmission Date: 20080405
  Serious: Yes (Other)
  Sender: FDA-Public Use
  Company Number: GB-BRISTOL-MYERS SQUIBB COMPANY-13990312

PATIENT
  Age: 41 Year
  Sex: Female

DRUGS (7)
  1. TRAZODONE HCL [Suspect]
     Indication: DEPRESSION
     Route: 048
     Dates: start: 20070522
  2. TRAZODONE HCL [Suspect]
     Indication: INSOMNIA
     Route: 048
     Dates: start: 20070522
  3. DIHYDROCODEINE [Concomitant]
  4. SERETIDE [Concomitant]
  5. TIOTROPIUM BROMIDE [Concomitant]
  6. VENLAFAXINE HCL [Concomitant]
  7. VENTOLIN [Concomitant]

REACTIONS (2)
  - ASTHMA [None]
  - DYSPNOEA [None]
